FAERS Safety Report 14806221 (Version 1)
Quarter: 2018Q2

REPORT INFORMATION
  Report Type: Spontaneous
  Country: US (occurrence: US)
  Receive Date: 20180425
  Receipt Date: 20180425
  Transmission Date: 20180711
  Serious: No
  Sender: FDA-Public Use
  Company Number: US-UPSHER-SMITH LABORATORIES, LLC-2017USL00216

PATIENT

DRUGS (1)
  1. QUDEXY XR [Suspect]
     Active Substance: TOPIRAMATE
     Indication: WEIGHT DECREASED
     Dosage: UNK
     Dates: start: 201708, end: 201709

REACTIONS (1)
  - Headache [Unknown]

NARRATIVE: CASE EVENT DATE: 2017
